FAERS Safety Report 10574181 (Version 2)
Quarter: 2014Q4

REPORT INFORMATION
  Report Type: Report from Study
  Country: CN (occurrence: CN)
  Receive Date: 20141110
  Receipt Date: 20141110
  Transmission Date: 20150529
  Serious: Yes (Hospitalization, Other)
  Sender: FDA-Public Use
  Company Number: CN-BAYER-2014-125878

PATIENT
  Age: 58 Year
  Sex: Male

DRUGS (2)
  1. NEXAVAR [Suspect]
     Active Substance: SORAFENIB
     Indication: METASTASES TO PERIPHERAL VASCULAR SYSTEM
     Dosage: 200 MG, BID
     Dates: start: 20140927, end: 20141026
  2. NEXAVAR [Suspect]
     Active Substance: SORAFENIB
     Indication: HEPATIC CANCER STAGE IV
     Dosage: 400 MG, BID
     Dates: start: 20140815, end: 20140926

REACTIONS (15)
  - Pain in extremity [None]
  - Body temperature increased [Recovered/Resolved]
  - Blood pressure increased [None]
  - Palmar-plantar erythrodysaesthesia syndrome [None]
  - Mouth ulceration [Recovered/Resolved]
  - Asthenia [None]
  - Pain [None]
  - Alpha 1 foetoprotein increased [None]
  - White blood cell count decreased [None]
  - Abdominal distension [None]
  - Blood pressure fluctuation [None]
  - Blood pressure increased [None]
  - Headache [None]
  - Decreased appetite [None]
  - Oropharyngeal pain [None]

NARRATIVE: CASE EVENT DATE: 2014
